FAERS Safety Report 18300766 (Version 1)
Quarter: 2020Q3

REPORT INFORMATION
  Report Type: Spontaneous
  Country: US (occurrence: US)
  Receive Date: 20200923
  Receipt Date: 20200923
  Transmission Date: 20201103
  Serious: Yes (Other)
  Sender: FDA-Public Use
  Company Number: US-009507513-2009USA007435

PATIENT
  Age: 81 Year
  Sex: Female

DRUGS (1)
  1. KEYTRUDA [Suspect]
     Active Substance: PEMBROLIZUMAB
     Indication: NEOPLASM MALIGNANT
     Dosage: DOSE MIGHT BE 400MG, Q3W
     Route: 042
     Dates: start: 20200501

REACTIONS (33)
  - Dysphemia [Unknown]
  - Pain [Unknown]
  - Dyspnoea [Unknown]
  - Constipation [Unknown]
  - Dizziness [Unknown]
  - Fatigue [Unknown]
  - Malignant neoplasm progression [Unknown]
  - Cognitive disorder [Unknown]
  - Dysphagia [Unknown]
  - Rash pruritic [Unknown]
  - Cough [Unknown]
  - Arthralgia [Not Recovered/Not Resolved]
  - Ear discomfort [Unknown]
  - Malaise [Unknown]
  - Chest discomfort [Unknown]
  - Insomnia [Unknown]
  - Myalgia [Not Recovered/Not Resolved]
  - Nausea [Unknown]
  - Product use in unapproved indication [Unknown]
  - Confusional state [Unknown]
  - Headache [Not Recovered/Not Resolved]
  - Discomfort [Unknown]
  - Poor quality sleep [Unknown]
  - Cerebral disorder [Not Recovered/Not Resolved]
  - Balance disorder [Unknown]
  - Disturbance in attention [Unknown]
  - Weight increased [Unknown]
  - Dysphonia [Unknown]
  - Oliguria [Unknown]
  - Oropharyngeal pain [Unknown]
  - Memory impairment [Unknown]
  - Dry eye [Unknown]
  - Vomiting [Unknown]

NARRATIVE: CASE EVENT DATE: 2020
